FAERS Safety Report 19640609 (Version 1)
Quarter: 2021Q3

REPORT INFORMATION
  Report Type: Report from Study
  Country: US (occurrence: US)
  Receive Date: 20210730
  Receipt Date: 20210730
  Transmission Date: 20211014
  Serious: Yes (Other)
  Sender: FDA-Public Use
  Company Number: US-BIOVITRUM-2021US7041

PATIENT
  Age: 8 Year
  Sex: Male

DRUGS (2)
  1. KINERET [Suspect]
     Active Substance: ANAKINRA
     Indication: STATUS EPILEPTICUS
  2. KINERET [Suspect]
     Active Substance: ANAKINRA
     Indication: EPILEPSY
     Route: 058
     Dates: start: 20180725

REACTIONS (3)
  - Seizure [Unknown]
  - Off label use [Not Recovered/Not Resolved]
  - Infection [Unknown]

NARRATIVE: CASE EVENT DATE: 20180725
